FAERS Safety Report 5325460-3 (Version None)
Quarter: 2007Q2

REPORT INFORMATION
  Report Type: 
  Country: None (occurrence: None)
  Receive Date: 20070515
  Receipt Date: 20070503
  Transmission Date: 20071010
  Serious: Yes (Other)
  Sender: FDA-Public Use
  Company Number: US-PFIZER INC-2007028748

PATIENT
  Sex: Female
  Weight: 69.9 kg

DRUGS (8)
  1. LIPITOR [Suspect]
     Indication: BLOOD CHOLESTEROL INCREASED
  2. PROPOFOL [Suspect]
     Indication: ANAESTHESIA
  3. SYNTHROID [Suspect]
  4. PREDNISONE TAB [Suspect]
  5. CLARITIN [Suspect]
     Indication: SEASONAL ALLERGY
     Dosage: DAILY DOSE:10MG
  6. VITAMINS [Concomitant]
  7. CALCIUM CHLORIDE [Concomitant]
  8. ALBUTEROL [Concomitant]

REACTIONS (15)
  - ANAEMIA [None]
  - ASPIRATION [None]
  - BLOOD GLUCOSE ABNORMAL [None]
  - BLOOD THYROID STIMULATING HORMONE INCREASED [None]
  - BRONCHOSPASM [None]
  - CHEST DISCOMFORT [None]
  - COUGH [None]
  - DROOLING [None]
  - DYSPNOEA [None]
  - EOSINOPHIL COUNT ABNORMAL [None]
  - HYPERSENSITIVITY [None]
  - LOW DENSITY LIPOPROTEIN INCREASED [None]
  - NEUTROPHIL COUNT DECREASED [None]
  - PULMONARY ARTERIAL PRESSURE [None]
  - TONGUE BITING [None]
